FAERS Safety Report 16323512 (Version 1)
Quarter: 2019Q2

REPORT INFORMATION
  Report Type: Report from Study
  Country: CA (occurrence: CA)
  Receive Date: 20190517
  Receipt Date: 20190517
  Transmission Date: 20190711
  Serious: Yes (Death)
  Sender: FDA-Public Use
  Company Number: CA-BIOGEN-2019BI00737109

PATIENT
  Age: 74 Year
  Sex: Male

DRUGS (1)
  1. FAMPYRA [Suspect]
     Active Substance: DALFAMPRIDINE
     Indication: GAIT DISTURBANCE
     Route: 048
     Dates: start: 20130607, end: 20190504

REACTIONS (2)
  - Completed suicide [Fatal]
  - Intentional overdose [Fatal]

NARRATIVE: CASE EVENT DATE: 20190504
